FAERS Safety Report 7523831-8 (Version None)
Quarter: 2011Q2

REPORT INFORMATION
  Report Type: 
  Country: None (occurrence: None)
  Receive Date: 20110603
  Receipt Date: 20110523
  Transmission Date: 20111010
  Serious: Yes (Hospitalization)
  Sender: FDA-Public Use
  Company Number: JP-ELI_LILLY_AND_COMPANY-JP201105007389

PATIENT
  Age: 86 Year
  Sex: Female
  Weight: 51.7 kg

DRUGS (11)
  1. ALFAROL [Concomitant]
  2. DAIKENTYUTO [Concomitant]
  3. SUNRYTHM [Concomitant]
     Route: 048
  4. GEMZAR [Suspect]
     Indication: PANCREATIC CARCINOMA
     Dosage: 1200 MG, OTHER
     Route: 042
     Dates: start: 20110427, end: 20110503
  5. CINAL [Concomitant]
     Route: 048
  6. MIYA BM [Concomitant]
     Route: 048
  7. ADALAT [Concomitant]
  8. AMARYL [Concomitant]
     Route: 048
  9. TRICHLORMETHIAZIDE [Concomitant]
  10. OMEPRAZOLE [Concomitant]
     Route: 048
  11. URSO 250 [Concomitant]

REACTIONS (3)
  - RASH [None]
  - ERYTHEMA [None]
  - PYREXIA [None]
